FAERS Safety Report 9236724 (Version 2)
Quarter: 2013Q2

REPORT INFORMATION
  Report Type: Spontaneous
  Country: US (occurrence: US)
  Receive Date: 20130417
  Receipt Date: 20130514
  Transmission Date: 20140414
  Serious: Yes (Hospitalization)
  Sender: FDA-Public Use
  Company Number: US-TEVA-398819USA

PATIENT
  Age: 58 Year
  Sex: Female
  Weight: 78.09 kg

DRUGS (21)
  1. QVAR [Suspect]
     Indication: ASTHMA
     Dosage: 8 UG/1
     Route: 055
  2. QVAR [Suspect]
     Indication: CHRONIC OBSTRUCTIVE PULMONARY DISEASE
  3. QVAR [Suspect]
     Indication: EMPHYSEMA
  4. ADVAIR [Suspect]
     Indication: ASTHMA
  5. ADVAIR [Suspect]
     Indication: CHRONIC OBSTRUCTIVE PULMONARY DISEASE
  6. ADVAIR [Suspect]
     Indication: EMPHYSEMA
  7. SPIRIVA [Suspect]
     Indication: ASTHMA
  8. SPIRIVA [Suspect]
     Indication: CHRONIC OBSTRUCTIVE PULMONARY DISEASE
  9. SPIRIVA [Suspect]
     Indication: EMPHYSEMA
  10. ALBUTEROL SULFATE [Concomitant]
     Dosage: Q 4-6 HOURS
  11. IPRATROPIUM BROMIDE [Concomitant]
     Dosage: Q 4-6 HOURS
  12. LEVOTHYROXINE [Concomitant]
     Dosage: 88 MICROGRAM DAILY;
     Route: 048
  13. ALBUTEROL [Concomitant]
     Dosage: 2-3X/DAY
     Route: 048
  14. PREDNISONE [Concomitant]
     Route: 048
  15. THEOPHYLLINE [Concomitant]
     Dosage: 250 MILLIGRAM DAILY; QAM
  16. THEOPHYLLINE [Concomitant]
     Dosage: 300 MILLIGRAM DAILY; QPM
  17. VITAMIN D2 [Concomitant]
  18. MUCINEX [Concomitant]
     Dosage: Q12HR
  19. ADVIL [Concomitant]
     Indication: SLEEP DISORDER
     Dosage: 200 MILLIGRAM DAILY; QHS
  20. OXYGEN [Concomitant]
  21. CLARITIN-D [Concomitant]
     Dosage: Q12HR

REACTIONS (1)
  - Asthma [Recovered/Resolved]
